FAERS Safety Report 4561583-4 (Version None)
Quarter: 2005Q1

REPORT INFORMATION
  Report Type: 
  Country: None (occurrence: None)
  Receive Date: 20050126
  Receipt Date: 20020826
  Transmission Date: 20050727
  Serious: Yes (Disabling)
  Sender: FDA-Public Use
  Company Number: US-GLAXOSMITHKLINE-A0379119A

PATIENT
  Sex: Female

DRUGS (1)
  1. PAXIL [Suspect]
     Indication: DEPRESSION
     Dates: start: 20011001, end: 20020827

REACTIONS (11)
  - CONSTIPATION [None]
  - DISORIENTATION [None]
  - DRUG WITHDRAWAL SYNDROME [None]
  - HEADACHE [None]
  - HYPERHIDROSIS [None]
  - IRRITABILITY [None]
  - LOSS OF EMPLOYMENT [None]
  - MYALGIA [None]
  - NAUSEA [None]
  - PARAESTHESIA [None]
  - VOMITING [None]
